FAERS Safety Report 16641503 (Version 1)
Quarter: 2019Q3

REPORT INFORMATION
  Report Type: Spontaneous
  Country: SG (occurrence: SG)
  Receive Date: 20190729
  Receipt Date: 20190729
  Transmission Date: 20191004
  Serious: Yes (Life-Threatening, Hospitalization)
  Sender: FDA-Public Use
  Company Number: SG-SUN PHARMACEUTICAL INDUSTRIES LTD-2019R1-214589

PATIENT
  Age: 58 Year
  Sex: Male

DRUGS (1)
  1. DOXORUBICIN [Suspect]
     Active Substance: DOXORUBICIN
     Indication: DIFFUSE LARGE B-CELL LYMPHOMA
     Dosage: CUMULATIVE DOSE OF 770 MG
     Route: 065

REACTIONS (4)
  - Pneumonia staphylococcal [Unknown]
  - Transaminases increased [Unknown]
  - Cardiomyopathy [Recovering/Resolving]
  - Cardiac failure acute [Recovering/Resolving]
